FAERS Safety Report 12225599 (Version 2)
Quarter: 2016Q2

REPORT INFORMATION
  Report Type: Spontaneous
  Country: MX (occurrence: MX)
  Receive Date: 20160331
  Receipt Date: 20160411
  Transmission Date: 20160815
  Serious: Yes (Hospitalization, Other)
  Sender: FDA-Public Use
  Company Number: MX-SUPERNUS PHARMACEUTICALS, INC.-2016SUP00072

PATIENT
  Age: 31 Year
  Sex: Male

DRUGS (4)
  1. KALLION XR [Suspect]
     Active Substance: OXCARBAZEPINE
     Dosage: 1200 MG, 1X/DAY
     Route: 048
     Dates: start: 20160314, end: 20160314
  2. KALLION XR [Suspect]
     Active Substance: OXCARBAZEPINE
     Dosage: 600 MG, 1X/DAY
     Route: 048
     Dates: start: 20160226, end: 20160309
  3. KALLION XR [Suspect]
     Active Substance: OXCARBAZEPINE
     Dosage: 900 MG, 1X/DAY
     Route: 048
     Dates: start: 20160310, end: 20160313
  4. KALLION XR [Suspect]
     Active Substance: OXCARBAZEPINE
     Indication: PARTIAL SEIZURES
     Dosage: 300 MG, 1X/DAY
     Route: 048
     Dates: start: 20160210, end: 20160225

REACTIONS (3)
  - Hypokalaemia [Recovered/Resolved]
  - Atrioventricular block second degree [Unknown]
  - Hyponatraemia [Recovered/Resolved]

NARRATIVE: CASE EVENT DATE: 20160314
